FAERS Safety Report 9316314 (Version 1)
Quarter: 2013Q2

REPORT INFORMATION
  Report Type: Spontaneous
  Country: US (occurrence: None)
  Receive Date: 20130528
  Receipt Date: 20130528
  Transmission Date: 20140414
  Serious: No
  Sender: FDA-Public Use
  Company Number: None

PATIENT
  Sex: Male

DRUGS (1)
  1. TECFIDERA [Suspect]
     Indication: MULTIPLE SCLEROSIS
     Dosage: BID X 7 DAYS THEN 240MG
     Route: 048
     Dates: start: 20130501

REACTIONS (3)
  - Headache [None]
  - Gastric disorder [None]
  - Haematochezia [None]
